FAERS Safety Report 8491394-9 (Version None)
Quarter: 2012Q2

REPORT INFORMATION
  Report Type: 
  Country: None (occurrence: None)
  Receive Date: 20120402
  Receipt Date: 20101102
  Transmission Date: 20120825
  Serious: Yes (Hospitalization)
  Sender: FDA-Public Use
  Company Number: A-US2010-41296

PATIENT
  Sex: Male

DRUGS (1)
  1. EPOPROSTENOL SODIUM [Suspect]
     Indication: PRODUCT USED FOR UNKNOWN INDICATION
     Dosage: IV DRIP
     Route: 041

REACTIONS (1)
  - DRUG INEFFECTIVE [None]
